FAERS Safety Report 26191455 (Version 1)
Quarter: 2025Q4

REPORT INFORMATION
  Report Type: Spontaneous
  Country: US (occurrence: US)
  Receive Date: 20251223
  Receipt Date: 20251223
  Transmission Date: 20260117
  Serious: Yes (Other)
  Sender: PFIZER
  Company Number: US-PFIZER INC-PV202500148775

PATIENT
  Age: 39 Year
  Sex: Female
  Weight: 71.655 kg

DRUGS (6)
  1. NURTEC ODT [Suspect]
     Active Substance: RIMEGEPANT SULFATE
     Indication: Migraine
     Dosage: 75 MG, AS NEEDED
     Route: 048
     Dates: start: 202203, end: 20250713
  2. TYLENOL [Suspect]
     Active Substance: ACETAMINOPHEN
     Indication: Migraine
     Dosage: 500-1500 MG, AS NEEDED
     Route: 048
     Dates: start: 20250713
  3. LABETALOL HYDROCHLORIDE [Suspect]
     Active Substance: LABETALOL HYDROCHLORIDE
     Indication: Migraine prophylaxis
     Dosage: 100 MG, 2X/DAY
     Route: 048
     Dates: start: 20250728
  4. LABETALOL HYDROCHLORIDE [Suspect]
     Active Substance: LABETALOL HYDROCHLORIDE
     Indication: Postural orthostatic tachycardia syndrome
  5. FIORICET [Concomitant]
     Active Substance: ACETAMINOPHEN\BUTALBITAL\CAFFEINE
     Indication: Headache
     Dosage: UNK
     Route: 048
     Dates: start: 20250821
  6. MINERALS\VITAMINS [Concomitant]
     Active Substance: MINERALS\VITAMINS
     Indication: Pregnancy
     Dosage: UNK
     Route: 048
     Dates: start: 2025

REACTIONS (2)
  - Maternal exposure during pregnancy [Unknown]
  - Low-lying placenta [Recovered/Resolved]

NARRATIVE: CASE EVENT DATE: 20251031
